FAERS Safety Report 9436532 (Version 1)
Quarter: 2013Q3

REPORT INFORMATION
  Report Type: Spontaneous
  Country: US (occurrence: US)
  Receive Date: 20130802
  Receipt Date: 20130802
  Transmission Date: 20140515
  Serious: No
  Sender: FDA-Public Use
  Company Number: US-OPTIMER-20130094

PATIENT
  Age: 78 Year
  Sex: Female

DRUGS (4)
  1. DIFICID [Suspect]
     Indication: CLOSTRIDIUM DIFFICILE COLITIS
     Dosage: 200 MG, BID
     Dates: start: 20130220, end: 201303
  2. REMERON [Concomitant]
     Dosage: UNK
  3. METRONIDAZOLE [Concomitant]
     Dosage: UNK
     Dates: start: 201302, end: 201302
  4. MEGACE [Concomitant]
     Route: 048

REACTIONS (4)
  - Rash pustular [Recovered/Resolved]
  - Rash generalised [Unknown]
  - Pruritus generalised [Unknown]
  - Drug ineffective [Unknown]
